FAERS Safety Report 18578757 (Version 2)
Quarter: 2021Q1

REPORT INFORMATION
  Report Type: Report from Study
  Country: US (occurrence: US)
  Receive Date: 20201204
  Receipt Date: 20210111
  Transmission Date: 20210419
  Serious: Yes (Hospitalization)
  Sender: FDA-Public Use
  Company Number: US-BIOGEN-2020BI00951959

PATIENT
  Sex: Male

DRUGS (1)
  1. TYSABRI [Suspect]
     Active Substance: NATALIZUMAB
     Indication: PROGRESSIVE MULTIPLE SCLEROSIS
     Route: 065
     Dates: start: 20191001

REACTIONS (2)
  - Multiple sclerosis relapse [Unknown]
  - Progressive multiple sclerosis [Not Recovered/Not Resolved]
